FAERS Safety Report 7604860-2 (Version None)
Quarter: 2011Q3

REPORT INFORMATION
  Report Type: 
  Country: None (occurrence: None)
  Receive Date: 20110712
  Receipt Date: 20110630
  Transmission Date: 20111222
  Serious: Yes (Other)
  Sender: FDA-Public Use
  Company Number: US-RB-029863-11

PATIENT
  Age: 44 Year
  Sex: Female

DRUGS (1)
  1. SUBOXONE [Suspect]
     Indication: PRODUCT USED FOR UNKNOWN INDICATION
     Dosage: DOSAGE INFORMATION UNKNOWN
     Route: 065

REACTIONS (8)
  - MEMORY IMPAIRMENT [None]
  - CONDITION AGGRAVATED [None]
  - SLUGGISHNESS [None]
  - FATIGUE [None]
  - DISTURBANCE IN ATTENTION [None]
  - HALLUCINATIONS, MIXED [None]
  - FEELING ABNORMAL [None]
  - PAIN [None]
